FAERS Safety Report 13209557 (Version 1)
Quarter: 2017Q1

REPORT INFORMATION
  Report Type: Spontaneous
  Country: US (occurrence: US)
  Receive Date: 20170209
  Receipt Date: 20170209
  Transmission Date: 20170428
  Serious: No
  Sender: FDA-Public Use
  Company Number: US-ALLERGAN-1651020US

PATIENT
  Age: 14 Year
  Sex: Female

DRUGS (2)
  1. BOTOX [Suspect]
     Active Substance: ONABOTULINUMTOXINA
     Indication: DETRUSOR SPHINCTER DYSSYNERGIA
     Dosage: 300 UNITS, SINGLE
     Route: 030
     Dates: start: 20160308, end: 20160308
  2. BOTOX [Suspect]
     Active Substance: ONABOTULINUMTOXINA
     Indication: NEUROGENIC BLADDER

REACTIONS (9)
  - Off label use [Unknown]
  - Abdominal pain [Unknown]
  - Ocular discomfort [Unknown]
  - Abnormal sensation in eye [Unknown]
  - Dizziness [Unknown]
  - Balance disorder [Unknown]
  - Headache [Not Recovered/Not Resolved]
  - Eye movement disorder [Unknown]
  - Photosensitivity reaction [Unknown]
